FAERS Safety Report 21136956 (Version 1)
Quarter: 2022Q3

REPORT INFORMATION
  Report Type: Spontaneous
  Country: US (occurrence: None)
  Receive Date: 20220726
  Receipt Date: 20220726
  Transmission Date: 20221026
  Serious: Yes (Other)
  Sender: FDA-Public Use
  Company Number: None

PATIENT
  Age: 44 Year
  Sex: Female

DRUGS (1)
  1. MAGNESIUM CITRATE LEMON [Suspect]
     Active Substance: MAGNESIUM CITRATE
     Dates: start: 20220322, end: 20220322

REACTIONS (6)
  - Drug ineffective [None]
  - Gastrointestinal pain [None]
  - Abdominal pain [None]
  - Vomiting [None]
  - Abdominal pain [None]
  - Intestinal obstruction [None]

NARRATIVE: CASE EVENT DATE: 20220323
